FAERS Safety Report 21867919 (Version 1)
Quarter: 2023Q1

REPORT INFORMATION
  Report Type: Spontaneous
  Country: GB (occurrence: GB)
  Receive Date: 20230116
  Receipt Date: 20230116
  Transmission Date: 20230418
  Serious: Yes (Hospitalization, Other)
  Sender: FDA-Public Use
  Company Number: GB-MHRA-MED-202301131531490080-RLFPG

PATIENT
  Age: 47 Year
  Sex: Female

DRUGS (5)
  1. METHOTREXATE SODIUM [Suspect]
     Active Substance: METHOTREXATE SODIUM
     Indication: Psoriasis
     Dosage: 25 MG, WEEKLY
     Dates: start: 2021
  2. FEXOFENADINE [Concomitant]
     Active Substance: FEXOFENADINE HYDROCHLORIDE
  3. FOLIC ACID [Concomitant]
     Active Substance: FOLIC ACID
  4. NITROFURANTOIN [Concomitant]
     Active Substance: NITROFURANTOIN
  5. RIVAROXABAN [Concomitant]
     Active Substance: RIVAROXABAN

REACTIONS (3)
  - Abdominal distension [Recovering/Resolving]
  - Hepatic cirrhosis [Unknown]
  - Off label use [Unknown]
